FAERS Safety Report 17272422 (Version 1)
Quarter: 2020Q1

REPORT INFORMATION
  Report Type: Spontaneous
  Country: IE (occurrence: IE)
  Receive Date: 20200115
  Receipt Date: 20200115
  Transmission Date: 20200409
  Serious: Yes (Death, Life-Threatening, Hospitalization, Other)
  Sender: FDA-Public Use
  Company Number: IE-TEVA-2020-IE-1166653

PATIENT
  Age: 72 Year
  Sex: Female

DRUGS (4)
  1. GLICLAZIDE [Concomitant]
     Active Substance: GLICLAZIDE
     Dosage: 240 MILLIGRAM DAILY; 160MG IN MORNING AND 80MG AT NIGHT
     Route: 065
  2. AMLODIPINE [Concomitant]
     Active Substance: AMLODIPINE BESYLATE
     Dosage: 10 MILLIGRAM DAILY;
     Route: 065
  3. METFORMIN [Suspect]
     Active Substance: METFORMIN HYDROCHLORIDE
     Indication: TYPE 2 DIABETES MELLITUS
     Dosage: THRICE A DAY
     Route: 048
  4. SIMVASTATIN. [Concomitant]
     Active Substance: SIMVASTATIN
     Dosage: 20 MILLIGRAM DAILY;
     Route: 065

REACTIONS (6)
  - Contraindicated product administered [Unknown]
  - Lactic acidosis [Unknown]
  - Hypoglycaemia [Recovered/Resolved]
  - Metabolic acidosis [Unknown]
  - Cardiac arrest [Recovered/Resolved]
  - Death [Fatal]
